FAERS Safety Report 9155604 (Version 2)
Quarter: 2013Q2

REPORT INFORMATION
  Report Type: Report from Study
  Country: HU (occurrence: HU)
  Receive Date: 20130311
  Receipt Date: 20130415
  Transmission Date: 20140414
  Serious: Yes (Other)
  Sender: FDA-Public Use
  Company Number: HU-GLAXOSMITHKLINE-B0872865A

PATIENT
  Age: 81 Year
  Sex: Female

DRUGS (12)
  1. SERETIDE (50MCG/500MCG) [Suspect]
     Indication: ASTHMA
     Route: 065
     Dates: start: 201209, end: 20130128
  2. EUPHYLONG [Concomitant]
     Dosage: 250MG PER DAY
     Dates: start: 201301, end: 20130225
  3. NITROMINT [Concomitant]
     Dosage: 2.6MG TWICE PER DAY
  4. NITROMINT [Concomitant]
  5. INHIBACE [Concomitant]
     Indication: HYPERTENSION
  6. FUROSEMID [Concomitant]
     Dosage: 40MG AS REQUIRED
     Dates: start: 1992
  7. KALIUM R [Concomitant]
  8. ASPIRIN PROTECT [Concomitant]
     Dosage: 100MG PER DAY
  9. ATORIS [Concomitant]
     Dosage: 20MG PER DAY
  10. ZYRTEC [Concomitant]
     Dosage: 10MG PER DAY
  11. SUPRASTIN [Concomitant]
     Indication: HYPERSENSITIVITY
     Dosage: 1TAB TWICE PER DAY
  12. CALCIUM [Concomitant]
     Indication: HYPERSENSITIVITY
     Dosage: 2TAB PER DAY

REACTIONS (10)
  - Pneumonia [Recovered/Resolved]
  - Pyrexia [Recovered/Resolved]
  - Muscle spasms [Recovered/Resolved]
  - Cough [Recovered/Resolved]
  - Sinusitis [Recovering/Resolving]
  - Tension [Recovering/Resolving]
  - Bronchitis [Recovering/Resolving]
  - Dyspnoea [Recovering/Resolving]
  - Palpitations [Recovering/Resolving]
  - Crying [Recovering/Resolving]
